FAERS Safety Report 14676528 (Version 1)
Quarter: 2018Q1

REPORT INFORMATION
  Report Type: Report from Study
  Country: None (occurrence: BR)
  Receive Date: 20180324
  Receipt Date: 20180324
  Transmission Date: 20180509
  Serious: Yes (Other)
  Sender: FDA-Public Use
  Company Number: BR-ABBVIE-17K-020-2028187-00

PATIENT
  Age: 55 Year
  Sex: Male
  Weight: 84.3 kg

DRUGS (5)
  1. HERVIRAX [Suspect]
     Active Substance: ACYCLOVIR
     Indication: AXILLARY MASS
     Route: 065
  2. METHOTREXATE. [Concomitant]
     Active Substance: METHOTREXATE
     Indication: PSORIATIC ARTHROPATHY
     Route: 048
  3. FOLIC ACID. [Concomitant]
     Active Substance: FOLIC ACID
     Indication: DRUG THERAPY
     Route: 048
  4. HUMIRA [Suspect]
     Active Substance: ADALIMUMAB
     Route: 058
  5. HUMIRA [Suspect]
     Active Substance: ADALIMUMAB
     Indication: PSORIATIC ARTHROPATHY
     Route: 058
     Dates: start: 20160503

REACTIONS (7)
  - Abdominal pain upper [Recovering/Resolving]
  - Oesophageal haemorrhage [Unknown]
  - Prostatomegaly [Not Recovered/Not Resolved]
  - Ulcer [Unknown]
  - Gastrooesophageal reflux disease [Recovering/Resolving]
  - Axillary mass [Recovered/Resolved]
  - Gastritis [Unknown]

NARRATIVE: CASE EVENT DATE: 20160811
